FAERS Safety Report 17480798 (Version 1)
Quarter: 2020Q1

REPORT INFORMATION
  Report Type: Spontaneous
  Country: US (occurrence: US)
  Receive Date: 20200301
  Receipt Date: 20200301
  Transmission Date: 20200409
  Serious: No
  Sender: FDA-Public Use
  Company Number: US-ASTRAZENECA-2020SE29974

PATIENT
  Sex: Female
  Weight: 10.9 kg

DRUGS (2)
  1. SYNAGIS [Suspect]
     Active Substance: PALIVIZUMAB
     Indication: BRONCHOPULMONARY DYSPLASIA
     Dosage: 15MG/ML MONTHLY
     Route: 030
     Dates: start: 201911
  2. SYNAGIS [Suspect]
     Active Substance: PALIVIZUMAB
     Indication: PREMATURE BABY
     Dosage: 15MG/ML MONTHLY
     Route: 030
     Dates: start: 201911

REACTIONS (2)
  - Weight decreased [Unknown]
  - Influenza [Unknown]
